FAERS Safety Report 25038027 (Version 2)
Quarter: 2025Q2

REPORT INFORMATION
  Report Type: Spontaneous
  Country: AU (occurrence: AU)
  Receive Date: 20250304
  Receipt Date: 20250401
  Transmission Date: 20250717
  Serious: No
  Sender: UCB
  Company Number: AU-UCBSA-2025012544

PATIENT
  Sex: Male

DRUGS (1)
  1. NEUPRO [Suspect]
     Active Substance: ROTIGOTINE
     Indication: Product used for unknown indication
     Route: 062
     Dates: start: 202312

REACTIONS (1)
  - Product adhesion issue [Unknown]
